FAERS Safety Report 4890737-2 (Version None)
Quarter: 2006Q1

REPORT INFORMATION
  Report Type: 
  Country: None (occurrence: None)
  Receive Date: 20060125
  Receipt Date: 20041217
  Transmission Date: 20060701
  Serious: Yes (Other)
  Sender: FDA-Public Use
  Company Number: US-BRISTOL-MYERS SQUIBB COMPANY-12803433

PATIENT
  Age: 33 Year
  Sex: Female

DRUGS (7)
  1. STADOL [Suspect]
     Indication: MIGRAINE
     Route: 045
     Dates: start: 19950401, end: 20020401
  2. BUTALBITAL ACETAMINOPHEN AND CAFFEINE [Concomitant]
  3. HYDROCODONE BITARTRATE [Concomitant]
  4. PROMETHAZINE [Concomitant]
  5. DEPAKOTE [Concomitant]
  6. HYDROXYZINE [Concomitant]
  7. ACETAMINOPHEN W/ PROPOXYPHENE HCL [Concomitant]

REACTIONS (1)
  - DEPENDENCE [None]
